FAERS Safety Report 16167458 (Version 1)
Quarter: 2019Q2

REPORT INFORMATION
  Report Type: Report from Study
  Country: IT (occurrence: IT)
  Receive Date: 20190408
  Receipt Date: 20190408
  Transmission Date: 20190711
  Serious: Yes (Hospitalization, Other)
  Sender: FDA-Public Use
  Company Number: IT-AUROBINDO-AUR-APL-2019-012080

PATIENT

DRUGS (10)
  1. HYDROCHLOROTHIAZIDE. [Concomitant]
     Active Substance: HYDROCHLOROTHIAZIDE
     Indication: ATRIAL FIBRILLATION
     Dosage: UNK
     Route: 065
  2. RITONAVIR. [Concomitant]
     Active Substance: RITONAVIR
     Indication: HEPATITIS C VIRUS TEST POSITIVE
     Dosage: UNK
     Route: 065
     Dates: start: 201504
  3. ACETYLSALICYLIC ACID [Concomitant]
     Active Substance: ASPIRIN
     Indication: ATRIAL FIBRILLATION
     Dosage: UNK
     Route: 065
  4. OMBITASVIR [Concomitant]
     Active Substance: OMBITASVIR
     Indication: HEPATITIS C VIRUS TEST POSITIVE
     Dosage: UNK
     Route: 065
     Dates: start: 201504
  5. VALSARTAN. [Suspect]
     Active Substance: VALSARTAN
     Indication: ATRIAL FIBRILLATION
     Dosage: UNK
     Route: 065
     Dates: end: 201507
  6. DASABUVIR [Concomitant]
     Active Substance: DASABUVIR
     Indication: HEPATITIS C VIRUS TEST POSITIVE
     Dosage: UNK
     Route: 065
     Dates: start: 201504
  7. RIBAVIRIN. [Concomitant]
     Active Substance: RIBAVIRIN
     Dates: start: 201504, end: 201507
  8. FLECAINIDE [Concomitant]
     Active Substance: FLECAINIDE
     Indication: ATRIAL FIBRILLATION
     Dosage: UNK
     Route: 065
  9. RIBAVIRIN. [Concomitant]
     Active Substance: RIBAVIRIN
     Indication: HEPATITIS C VIRUS TEST POSITIVE
     Dosage: 800 MILLIGRAM, DAILY (ON ADJUSTED DOSE)
     Route: 065
     Dates: start: 201507
  10. PARITAPREVIR [Concomitant]
     Active Substance: PARITAPREVIR
     Indication: HEPATITIS C VIRUS TEST POSITIVE
     Dosage: UNK
     Route: 065
     Dates: start: 201504

REACTIONS (2)
  - Syncope [Unknown]
  - Bradycardia [Unknown]

NARRATIVE: CASE EVENT DATE: 201507
